FAERS Safety Report 9648668 (Version 1)
Quarter: 2013Q4

REPORT INFORMATION
  Report Type: Spontaneous
  Country: US (occurrence: US)
  Receive Date: 20131028
  Receipt Date: 20131028
  Transmission Date: 20140711
  Serious: No
  Sender: FDA-Public Use
  Company Number: US-BAUSCH-BL-2013-000523

PATIENT
  Age: 17 Year
  Sex: Female

DRUGS (1)
  1. PROPARACAINE HYDROCHLORIDE OPHTHALMIC SOLUTION USP 0.5% [Suspect]
     Indication: OPHTHALMOLOGICAL EXAMINATION
     Dosage: ONE DROP IN EACH EYE ONCE
     Route: 047
     Dates: start: 20130129, end: 20130129

REACTIONS (7)
  - Nausea [Recovered/Resolved]
  - Syncope [Recovered/Resolved]
  - Muscle spasticity [Recovered/Resolved]
  - Asthenia [Recovered/Resolved]
  - Photophobia [Recovered/Resolved]
  - Hyperacusis [Recovered/Resolved]
  - Headache [Recovered/Resolved]
